FAERS Safety Report 17326040 (Version 4)
Quarter: 2020Q1

REPORT INFORMATION
  Report Type: Spontaneous
  Country: US (occurrence: US)
  Receive Date: 20200127
  Receipt Date: 20200211
  Transmission Date: 20200409
  Serious: Yes (Other)
  Sender: FDA-Public Use
  Company Number: US-PFIZER INC-2019562212

PATIENT
  Age: 77 Year
  Sex: Male
  Weight: 73.16 kg

DRUGS (3)
  1. VYNDAQEL [Suspect]
     Active Substance: TAFAMIDIS MEGLUMINE
     Indication: AMYLOIDOSIS
  2. CURCUMAX PRO [Concomitant]
     Dosage: UNK
  3. VYNDAQEL [Suspect]
     Active Substance: TAFAMIDIS MEGLUMINE
     Indication: CORONARY ARTERY DISEASE
     Dosage: 80 MG, 1X/DAY
     Route: 048
     Dates: start: 20191031

REACTIONS (3)
  - Sleep apnoea syndrome [Unknown]
  - Weight decreased [Unknown]
  - Body height decreased [Unknown]
